FAERS Safety Report 6899757-X (Version None)
Quarter: 2010Q3

REPORT INFORMATION
  Report Type: 
  Country: None (occurrence: None)
  Receive Date: 20100708
  Receipt Date: 20090723
  Transmission Date: 20110219
  Serious: Yes (Other)
  Sender: FDA-Public Use
  Company Number: 2009245031

PATIENT
  Age: 43 Year
  Sex: Male
  Weight: 63.5 kg

DRUGS (6)
  1. CHANTIX [Suspect]
     Indication: SMOKING CESSATION THERAPY
     Dates: start: 20090501, end: 20090706
  2. ADVAIR DISKUS 100/50 [Concomitant]
  3. CLARITIN [Concomitant]
  4. ALBUTEROL [Concomitant]
  5. VICODIN [Concomitant]
  6. RANITIDINE [Concomitant]

REACTIONS (10)
  - AMNESIA [None]
  - ANGER [None]
  - ANXIETY [None]
  - DECREASED APPETITE [None]
  - FEAR [None]
  - FRUSTRATION [None]
  - HYPERHIDROSIS [None]
  - LOSS OF CONSCIOUSNESS [None]
  - MOOD SWINGS [None]
  - WEIGHT DECREASED [None]
